FAERS Safety Report 8298681-8 (Version None)
Quarter: 2012Q2

REPORT INFORMATION
  Report Type: 
  Country: None (occurrence: None)
  Receive Date: 20120419
  Receipt Date: 20120404
  Transmission Date: 20120825
  Serious: Yes (Hospitalization)
  Sender: FDA-Public Use
  Company Number: US-ASTELLAS-2012US004044

PATIENT
  Sex: Male

DRUGS (1)
  1. PROGRAF [Suspect]
     Indication: LIVER TRANSPLANT
     Dosage: 1 MG, UNKNOWN/D
     Route: 065
     Dates: start: 20110207

REACTIONS (1)
  - LIVER TRANSPLANT [None]
